FAERS Safety Report 8405750-8 (Version None)
Quarter: 2012Q2

REPORT INFORMATION
  Report Type: 
  Country: None (occurrence: None)
  Receive Date: 20120323
  Receipt Date: 20110805
  Transmission Date: 20120825
  Serious: Yes (Other)
  Sender: FDA-Public Use
  Company Number: 163-21880-11052138

PATIENT
  Age: 79 Year
  Sex: Male

DRUGS (7)
  1. REVLIMID [Suspect]
     Indication: MULTIPLE MYELOMA
     Dosage: 5 MG, QOD X 3 WEEKS/OFF 1 WEEK, PO
     Route: 048
     Dates: start: 20110302, end: 20110401
  2. STEROID (CORTICOSTEROID NOS) [Suspect]
     Indication: PRODUCT USED FOR UNKNOWN INDICATION
  3. COREG [Concomitant]
  4. SYMBICORT (SYMBICORT TURBUHALER) [Concomitant]
  5. LASIX [Concomitant]
  6. TORSEMIDE [Concomitant]
  7. VELCADE [Suspect]
     Indication: MULTIPLE MYELOMA
     Dosage: 2 MG, 2X WK, 2 WEEKS ON, 1 WEEK OFF, IV
     Route: 042

REACTIONS (4)
  - FLUID RETENTION [None]
  - CARDIAC FAILURE CONGESTIVE [None]
  - HYPOTENSION [None]
  - DIZZINESS [None]
